FAERS Safety Report 8611516-6 (Version None)
Quarter: 2012Q3

REPORT INFORMATION
  Report Type: 
  Country: None (occurrence: None)
  Receive Date: 20120822
  Receipt Date: 20120815
  Transmission Date: 20120928
  Serious: Yes (Hospitalization)
  Sender: FDA-Public Use
  Company Number: BR-PFIZER INC-2012092551

PATIENT
  Age: 36 Year
  Sex: Female
  Weight: 87 kg

DRUGS (3)
  1. LYRICA [Suspect]
     Indication: TRIGEMINAL NEURALGIA
  2. TRILEPTAL [Concomitant]
     Indication: CONVULSION
     Dosage: 600 MG, 3X/DAY (8 IN 8 HOURS)
     Dates: start: 20070912
  3. LYRICA [Suspect]
     Indication: FACIAL PAIN
     Dosage: 75 MG, 3X/DAY (MORNING/AFTERNOON/NIGHT)
     Route: 048
     Dates: start: 20100912

REACTIONS (2)
  - DRUG INEFFECTIVE [None]
  - TRIGEMINAL NEURALGIA [None]
